FAERS Safety Report 15993785 (Version 1)
Quarter: 2019Q1

REPORT INFORMATION
  Report Type: Spontaneous
  Country: GB (occurrence: GB)
  Receive Date: 20190222
  Receipt Date: 20190222
  Transmission Date: 20190418
  Serious: Yes (Other)
  Sender: FDA-Public Use
  Company Number: GB-SA-2019SA023658

PATIENT
  Age: 57 Year
  Sex: Male

DRUGS (3)
  1. CLEXANE [Suspect]
     Active Substance: ENOXAPARIN SODIUM
     Dosage: 141 MG, QD
     Route: 065
  2. CLEXANE [Suspect]
     Active Substance: ENOXAPARIN SODIUM
     Indication: PULMONARY EMBOLISM
     Dosage: 40 MG, QD
     Route: 065
  3. CLEXANE [Suspect]
     Active Substance: ENOXAPARIN SODIUM
     Dosage: 150 MG, QD
     Route: 065

REACTIONS (16)
  - Pain [Recovered/Resolved]
  - Hiccups [Recovered/Resolved]
  - Blood pressure abnormal [Recovered/Resolved]
  - Epistaxis [Recovered/Resolved]
  - Dizziness [Recovered/Resolved]
  - Disability [Unknown]
  - Haematochezia [Unknown]
  - Thrombosis [Recovered/Resolved]
  - Fatigue [Recovered/Resolved]
  - Heart rate decreased [Recovered/Resolved]
  - Overdose [Unknown]
  - Hyperhidrosis [Recovered/Resolved]
  - Back pain [Recovered/Resolved]
  - Heart rate irregular [Recovered/Resolved]
  - Sneezing [Recovered/Resolved]
  - Bleeding time prolonged [Recovered/Resolved]
